FAERS Safety Report 22041646 (Version 1)
Quarter: 2023Q1

REPORT INFORMATION
  Report Type: Spontaneous
  Country: US (occurrence: US)
  Receive Date: 20230227
  Receipt Date: 20230227
  Transmission Date: 20230418
  Serious: Yes (Hospitalization, Other)
  Sender: FDA-Public Use
  Company Number: US-MYLANLABS-2023M1020569

PATIENT
  Age: 69 Year
  Sex: Male
  Weight: 85.28 kg

DRUGS (2)
  1. PREGABALIN [Suspect]
     Active Substance: PREGABALIN
     Indication: Pain
     Dosage: 100 MILLIGRAM, TID
     Route: 065
  2. TRAMADOL HYDROCHLORIDE [Concomitant]
     Active Substance: TRAMADOL HYDROCHLORIDE
     Indication: Pain
     Dosage: 50 MILLIGRAM (EVERY SIX HOURS AS NEEDED FOR PAIN, TAKE MAYE BE 4 TIMES)
     Route: 065

REACTIONS (5)
  - Anaemia [Recovered/Resolved]
  - Internal haemorrhage [Recovered/Resolved]
  - Cerebrovascular accident [Unknown]
  - Ischaemic stroke [Unknown]
  - Swelling [Not Recovered/Not Resolved]

NARRATIVE: CASE EVENT DATE: 20210823
